FAERS Safety Report 23201248 (Version 1)
Quarter: 2023Q4

REPORT INFORMATION
  Report Type: Spontaneous
  Country: CN (occurrence: CN)
  Receive Date: 20231118
  Receipt Date: 20231118
  Transmission Date: 20240110
  Serious: Yes (Hospitalization, Other)
  Sender: FDA-Public Use
  Company Number: CN-002147023-NVSC2023CN241552

PATIENT
  Age: 80 Year
  Sex: Female

DRUGS (1)
  1. SACUBITRIL\VALSARTAN [Suspect]
     Active Substance: SACUBITRIL\VALSARTAN
     Indication: Cardiac failure
     Dosage: 50 MG, QD
     Route: 048
     Dates: start: 20231006, end: 20231025

REACTIONS (6)
  - Hyperkalaemia [Recovered/Resolved]
  - Haemolysis [Unknown]
  - Blood pressure increased [Unknown]
  - Renal failure [Unknown]
  - Oesophageal ulcer [Unknown]
  - Product use issue [Unknown]

NARRATIVE: CASE EVENT DATE: 20231022
